FAERS Safety Report 11026438 (Version 2)
Quarter: 2015Q2

REPORT INFORMATION
  Report Type: Report from Study
  Country: US (occurrence: US)
  Receive Date: 20150414
  Receipt Date: 20150506
  Transmission Date: 20150821
  Serious: Yes (Hospitalization)
  Sender: FDA-Public Use
  Company Number: US-ABBVIE-15P-163-1374514-00

PATIENT
  Sex: Female

DRUGS (1)
  1. HUMIRA [Suspect]
     Active Substance: ADALIMUMAB
     Indication: CROHN^S DISEASE
     Route: 058
     Dates: start: 20140308

REACTIONS (4)
  - Rash [Unknown]
  - Intestinal obstruction [Not Recovered/Not Resolved]
  - Wheezing [Not Recovered/Not Resolved]
  - Vitamin D decreased [Not Recovered/Not Resolved]
